FAERS Safety Report 12485087 (Version 4)
Quarter: 2018Q4

REPORT INFORMATION
  Report Type: Spontaneous
  Country: US (occurrence: US)
  Receive Date: 20160621
  Receipt Date: 20181019
  Transmission Date: 20190204
  Serious: No
  Sender: FDA-Public Use
  Company Number: US-PFIZER INC-2016172425

PATIENT
  Sex: Male

DRUGS (3)
  1. CIPRO [Suspect]
     Active Substance: CIPROFLOXACIN HYDROCHLORIDE
     Dosage: UNK
  2. CIPROFLOXACIN. [Suspect]
     Active Substance: CIPROFLOXACIN
     Dosage: UNK
  3. SPRYCEL [Suspect]
     Active Substance: DASATINIB
     Dosage: UNK

REACTIONS (1)
  - Drug hypersensitivity [Unknown]
